FAERS Safety Report 24753272 (Version 1)
Quarter: 2024Q4

REPORT INFORMATION
  Report Type: Spontaneous
  Country: US (occurrence: US)
  Receive Date: 20241219
  Receipt Date: 20241219
  Transmission Date: 20250115
  Serious: Yes (Hospitalization, Other)
  Sender: HIKMA
  Company Number: US-MLMSERVICE-20241203-PI274190-00271-2

PATIENT
  Age: 59 Year
  Sex: Female

DRUGS (3)
  1. PEMBROLIZUMAB [Suspect]
     Active Substance: PEMBROLIZUMAB
     Indication: Endometrial cancer
     Dosage: UNK
     Route: 065
     Dates: start: 202309, end: 202312
  2. PREDNISONE [Suspect]
     Active Substance: PREDNISONE
     Indication: Immune-mediated enterocolitis
     Dosage: HIGH-DOSE PREDNISONE TAPER OVER 4 MONTHS
     Route: 065
     Dates: start: 2023
  3. AMIODARONE [Concomitant]
     Active Substance: AMIODARONE
     Indication: Atrial fibrillation
     Dosage: UNK
     Route: 065
     Dates: start: 202310

REACTIONS (2)
  - Immune-mediated adrenal insufficiency [Unknown]
  - Hypothalamic pituitary adrenal axis suppression [Unknown]
